FAERS Safety Report 11173494 (Version 1)
Quarter: 2015Q2

REPORT INFORMATION
  Report Type: Report from Study
  Country: US (occurrence: US)
  Receive Date: 20150609
  Receipt Date: 20150609
  Transmission Date: 20150821
  Serious: No
  Sender: FDA-Public Use
  Company Number: US-AMGEN-USASL2015054369

PATIENT
  Age: 58 Year
  Sex: Male

DRUGS (2)
  1. PREDNISONE. [Concomitant]
     Active Substance: PREDNISONE
     Dosage: UNK
  2. ENBREL [Suspect]
     Active Substance: ETANERCEPT
     Indication: RHEUMATOID ARTHRITIS
     Dosage: UNK UNK, QWK
     Route: 065
     Dates: start: 20150106

REACTIONS (5)
  - Memory impairment [Recovered/Resolved]
  - Arthralgia [Recovered/Resolved]
  - Paranasal sinus hypersecretion [Recovered/Resolved]
  - Sinusitis [Recovered/Resolved]
  - Laziness [Recovered/Resolved]

NARRATIVE: CASE EVENT DATE: 201502
